FAERS Safety Report 24042017 (Version 1)
Quarter: 2024Q3

REPORT INFORMATION
  Report Type: Spontaneous
  Country: US (occurrence: US)
  Receive Date: 20240702
  Receipt Date: 20240702
  Transmission Date: 20241017
  Serious: Yes (Hospitalization)
  Sender: AMGEN
  Company Number: US-AMGEN-USASP2024125531

PATIENT
  Age: 88 Year
  Sex: Female

DRUGS (2)
  1. PREDNISONE [Suspect]
     Active Substance: PREDNISONE
     Indication: Eosinophilic pneumonia chronic
     Dosage: 50 MILLIGRAM, QD
     Route: 065
  2. PREDNISONE [Suspect]
     Active Substance: PREDNISONE
     Indication: Prophylaxis
     Dosage: 0.5 MILLIGRAM/KILOGRAM, QD
     Route: 065

REACTIONS (2)
  - Eosinophilic pneumonia chronic [Recovered/Resolved]
  - Atrial fibrillation [Recovered/Resolved]
